FAERS Safety Report 21983594 (Version 3)
Quarter: 2023Q4

REPORT INFORMATION
  Report Type: Report from Study
  Country: US (occurrence: US)
  Receive Date: 20230213
  Receipt Date: 20231121
  Transmission Date: 20240110
  Serious: Yes (Other)
  Sender: FDA-Public Use
  Company Number: US-ABBVIE-22K-163-4348894-00

PATIENT
  Age: 86 Year
  Sex: Male

DRUGS (6)
  1. HUMIRA [Suspect]
     Active Substance: ADALIMUMAB
     Indication: Colitis ulcerative
     Route: 058
  2. HUMIRA [Suspect]
     Active Substance: ADALIMUMAB
     Route: 058
     Dates: start: 20180131
  3. HUMIRA [Suspect]
     Active Substance: ADALIMUMAB
     Route: 058
  4. HUMIRA [Suspect]
     Active Substance: ADALIMUMAB
     Route: 058
  5. HUMIRA [Suspect]
     Active Substance: ADALIMUMAB
     Route: 058
  6. AMOXICILLIN [Suspect]
     Active Substance: AMOXICILLIN
     Indication: Tooth disorder
     Route: 065

REACTIONS (18)
  - Aortic valve stenosis [Unknown]
  - Rash [Unknown]
  - Constipation [Recovering/Resolving]
  - Frequent bowel movements [Recovered/Resolved with Sequelae]
  - Weight gain poor [Not Recovered/Not Resolved]
  - Paraesthesia [Unknown]
  - COVID-19 [Recovering/Resolving]
  - Gastrooesophageal reflux disease [Unknown]
  - Dysstasia [Recovering/Resolving]
  - Weight decreased [Recovering/Resolving]
  - Chest pain [Not Recovered/Not Resolved]
  - Presyncope [Unknown]
  - Nausea [Unknown]
  - Dyspnoea [Unknown]
  - Chest discomfort [Unknown]
  - Muscle tightness [Unknown]
  - Asthenia [Unknown]
  - Mobility decreased [Unknown]

NARRATIVE: CASE EVENT DATE: 20230101
